FAERS Safety Report 23913898 (Version 3)
Quarter: 2024Q4

REPORT INFORMATION
  Report Type: Spontaneous
  Country: US (occurrence: US)
  Receive Date: 20240529
  Receipt Date: 20241111
  Transmission Date: 20250114
  Serious: Yes (Other)
  Sender: AMGEN
  Company Number: US-AMGEN-USASP2024101848

PATIENT
  Age: 42 Year
  Sex: Female

DRUGS (1)
  1. OTEZLA [Suspect]
     Active Substance: APREMILAST
     Indication: Psoriasis
     Dosage: 30 MILLIGRAM, BID
     Route: 048

REACTIONS (10)
  - Atrial fibrillation [Unknown]
  - Diarrhoea [Unknown]
  - Therapy interrupted [Unknown]
  - Burning sensation [Unknown]
  - Skin exfoliation [Unknown]
  - Back pain [Not Recovered/Not Resolved]
  - Pain [Unknown]
  - Swelling [Unknown]
  - Skin fissures [Unknown]
  - Skin haemorrhage [Unknown]

NARRATIVE: CASE EVENT DATE: 20240101
